FAERS Safety Report 17149700 (Version 1)
Quarter: 2019Q4

REPORT INFORMATION
  Report Type: Report from Study
  Country: US (occurrence: US)
  Receive Date: 20191213
  Receipt Date: 20191213
  Transmission Date: 20200122
  Serious: No
  Sender: FDA-Public Use
  Company Number: NVSC2019US005791

PATIENT
  Age: 54 Year
  Sex: Female

DRUGS (2)
  1. MEDROL [Concomitant]
     Active Substance: METHYLPREDNISOLONE
     Indication: MULTIPLE SCLEROSIS
     Dosage: UNK
     Route: 065
  2. MAYZENT [Suspect]
     Active Substance: SIPONIMOD
     Indication: SECONDARY PROGRESSIVE MULTIPLE SCLEROSIS
     Dosage: 2 MG, QD
     Route: 048
     Dates: start: 20190915

REACTIONS (12)
  - Nasal congestion [Not Recovered/Not Resolved]
  - Erythema [Unknown]
  - Fatigue [Not Recovered/Not Resolved]
  - Pain in extremity [Unknown]
  - Insomnia [Not Recovered/Not Resolved]
  - Rash [Not Recovered/Not Resolved]
  - Lung disorder [Unknown]
  - Arthralgia [Unknown]
  - Urticaria [Unknown]
  - Vein disorder [Unknown]
  - Lymphadenopathy [Unknown]
  - Joint swelling [Unknown]

NARRATIVE: CASE EVENT DATE: 20190921
